FAERS Safety Report 8015932-5 (Version None)
Quarter: 2011Q4

REPORT INFORMATION
  Report Type: 
  Country: None (occurrence: None)
  Receive Date: 20111223
  Receipt Date: 20111215
  Transmission Date: 20120403
  Serious: Yes (Hospitalization, Other)
  Sender: FDA-Public Use
  Company Number: SE-004616

PATIENT
  Age: 67 Year
  Sex: Female
  Weight: 68.9 kg

DRUGS (11)
  1. CORTISONE ACETATE [Concomitant]
  2. MINIRIN [Suspect]
     Indication: DIABETES INSIPIDUS
     Dosage: (20 UG NASAL), (10 UG NASAL)
     Route: 045
     Dates: start: 19780101, end: 20090512
  3. MINIRIN [Suspect]
     Indication: DIABETES INSIPIDUS
     Dosage: (20 UG NASAL), (10 UG NASAL)
     Route: 045
     Dates: start: 19780101, end: 20090512
  4. SOMATROPIN [Concomitant]
  5. MIRTAZAPINE [Concomitant]
  6. SIMVASTATIN [Concomitant]
  7. LEVOTHYROXINE SODIUM [Concomitant]
  8. CALCIUM CARBONATE [Concomitant]
  9. ESTRADERM [Concomitant]
  10. GESTAPURAN [Concomitant]
  11. ASPIRIN [Concomitant]

REACTIONS (7)
  - LETHARGY [None]
  - DRUG ADMINISTRATION ERROR [None]
  - NAUSEA [None]
  - VOMITING [None]
  - BLOOD SODIUM DECREASED [None]
  - PYREXIA [None]
  - FATIGUE [None]
